FAERS Safety Report 5629679-3 (Version None)
Quarter: 2008Q1

REPORT INFORMATION
  Report Type: 
  Country: None (occurrence: None)
  Receive Date: 20080218
  Receipt Date: 20080211
  Transmission Date: 20080703
  Serious: Yes (Hospitalization)
  Sender: FDA-Public Use
  Company Number: B0508230A

PATIENT
  Age: 34 Year
  Sex: Female

DRUGS (8)
  1. ZIDOVUDINE [Suspect]
     Indication: HIV INFECTION
     Dosage: 400MG PER DAY
     Route: 048
     Dates: start: 20041029, end: 20050928
  2. EPIVIR [Suspect]
     Indication: HIV INFECTION
     Dosage: 150MG TWICE PER DAY
     Route: 048
     Dates: start: 20041029, end: 20050228
  3. NELFINAVIR [Suspect]
     Indication: HIV INFECTION
     Dosage: 2500MG PER DAY
     Route: 048
     Dates: start: 20041029, end: 20050928
  4. FERROUS FUMARATE [Concomitant]
     Dates: start: 20041029, end: 20050228
  5. LOPERAMIDE HYDROCHLORIDE [Concomitant]
     Dates: start: 20041029, end: 20041104
  6. SULTAMICILLIN TOSILATE [Concomitant]
     Dates: start: 20041116, end: 20050120
  7. SERRAPEPTASE [Concomitant]
     Dates: start: 20041118, end: 20050120
  8. DEXTROMETHORPHAN HYDROBROMIDE [Concomitant]
     Dates: start: 20041118, end: 20050120

REACTIONS (4)
  - ABDOMINAL PAIN UPPER [None]
  - MUSCLE STRAIN [None]
  - THREATENED LABOUR [None]
  - UTERINE CONTRACTIONS DURING PREGNANCY [None]
